FAERS Safety Report 14169316 (Version 1)
Quarter: 2017Q4

REPORT INFORMATION
  Report Type: Spontaneous
  Country: CA (occurrence: CA)
  Receive Date: 20171108
  Receipt Date: 20171108
  Transmission Date: 20180321
  Serious: Yes (Hospitalization)
  Sender: FDA-Public Use
  Company Number: CA-ALKEM LABORATORIES LIMITED-CA-ALKEM-2017-00655

PATIENT

DRUGS (5)
  1. ZUCLOPENTHIXOL DECANOATE [Interacting]
     Active Substance: ZUCLOPENTHIXOL DECANOATE
     Indication: PRODUCT USED FOR UNKNOWN INDICATION
     Dosage: 200 MG, BI-MONTHLY
     Route: 030
  2. ZUCLOPENTHIXOL DECANOATE [Interacting]
     Active Substance: ZUCLOPENTHIXOL DECANOATE
     Dosage: 100 MG, BI-MONTHLY
     Route: 030
  3. METHADONE HYDROCHLORIDE. [Suspect]
     Active Substance: METHADONE HYDROCHLORIDE
     Indication: PRODUCT USED FOR UNKNOWN INDICATION
     Dosage: 200 MG, QD
     Route: 048
  4. METHADONE HYDROCHLORIDE. [Interacting]
     Active Substance: METHADONE HYDROCHLORIDE
     Dosage: 180 MG, QD
     Route: 048
  5. METHADONE HYDROCHLORIDE. [Interacting]
     Active Substance: METHADONE HYDROCHLORIDE
     Dosage: 70 MG, BID
     Route: 048

REACTIONS (2)
  - Drug interaction [Recovering/Resolving]
  - Electrocardiogram QT prolonged [Recovering/Resolving]
